FAERS Safety Report 9106868 (Version 1)
Quarter: 2013Q1

REPORT INFORMATION
  Report Type: Spontaneous
  Country: FR (occurrence: FR)
  Receive Date: 20130221
  Receipt Date: 20130221
  Transmission Date: 20140127
  Serious: Yes (Hospitalization)
  Sender: FDA-Public Use
  Company Number: FR-JNJFOC-20130210547

PATIENT
  Age: 68 Year
  Sex: Female

DRUGS (10)
  1. IXPRIM [Suspect]
     Indication: PAIN
     Route: 048
     Dates: start: 20110222, end: 20110223
  2. IXPRIM [Suspect]
     Indication: PAIN
     Route: 048
     Dates: start: 20100412, end: 20100509
  3. TEMODAL [Suspect]
     Indication: GLIOBLASTOMA
     Route: 048
     Dates: start: 20100211, end: 20100329
  4. TEMODAL [Suspect]
     Indication: GLIOBLASTOMA
     Dosage: FOR 5 DAYS PER MONTH
     Route: 048
     Dates: start: 201004, end: 201006
  5. LANSOPRAZOLE [Concomitant]
     Indication: PRODUCT USED FOR UNKNOWN INDICATION
     Route: 065
  6. TANAKAN [Concomitant]
     Indication: PRODUCT USED FOR UNKNOWN INDICATION
     Route: 048
  7. SEROPLEX [Concomitant]
     Indication: PRODUCT USED FOR UNKNOWN INDICATION
     Route: 048
  8. CACIT D3 [Concomitant]
     Indication: PRODUCT USED FOR UNKNOWN INDICATION
     Route: 048
  9. LEVOTHYROX [Concomitant]
     Indication: PRODUCT USED FOR UNKNOWN INDICATION
     Route: 048
  10. FOSAVANCE [Concomitant]
     Indication: PRODUCT USED FOR UNKNOWN INDICATION
     Route: 048

REACTIONS (2)
  - Toxic skin eruption [Recovered/Resolved]
  - Dermatitis exfoliative [Recovered/Resolved]
